FAERS Safety Report 11795831 (Version 2)
Quarter: 2015Q4

REPORT INFORMATION
  Report Type: Spontaneous
  Country: US (occurrence: US)
  Receive Date: 20151203
  Receipt Date: 20151228
  Transmission Date: 20160305
  Serious: Yes (Other)
  Sender: FDA-Public Use
  Company Number: US-JNJCP-30000314202

PATIENT
  Sex: Female
  Weight: 79 kg

DRUGS (1)
  1. NEUTROGENA HEALTHY DEFENSE DAILY MOISTURIZER SPF 50 WITH HELIOPLEX [Suspect]
     Active Substance: AVOBENZONE\HOMOSALATE\OCTISALATE\OCTOCRYLENE\OXYBENZONE
     Indication: DRY SKIN PROPHYLAXIS
     Dosage: DAILY
     Route: 061

REACTIONS (1)
  - Breast cancer [Not Recovered/Not Resolved]
